FAERS Safety Report 7900240-0 (Version None)
Quarter: 2011Q4

REPORT INFORMATION
  Report Type: 
  Country: None (occurrence: None)
  Receive Date: 20111108
  Receipt Date: 20111104
  Transmission Date: 20120403
  Serious: Yes (Other)
  Sender: FDA-Public Use
  Company Number: TR-ELI_LILLY_AND_COMPANY-TR201110003560

PATIENT
  Age: 9 Year
  Sex: Male

DRUGS (2)
  1. HUMULIN R [Suspect]
     Indication: DIABETES MELLITUS
     Dosage: 7 IU, TID
     Route: 058
     Dates: start: 20060101
  2. LANTUS [Concomitant]
     Dosage: 10 IU, EACH EVENING
     Route: 058

REACTIONS (2)
  - DYSPNOEA [None]
  - BLOOD GLUCOSE INCREASED [None]
